FAERS Safety Report 4842840-0 (Version None)
Quarter: 2005Q4

REPORT INFORMATION
  Report Type: 
  Country: None (occurrence: None)
  Receive Date: 20051130
  Receipt Date: 20051117
  Transmission Date: 20060501
  Serious: Yes (Death)
  Sender: FDA-Public Use
  Company Number: 2005157410

PATIENT
  Age: 50 Year
  Sex: Female

DRUGS (1)
  1. CELEBREX [Suspect]
     Indication: PAIN
     Dosage: (100 MG, PRN),

REACTIONS (1)
  - SUDDEN CARDIAC DEATH [None]
